FAERS Safety Report 7903008-4 (Version None)
Quarter: 2011Q4

REPORT INFORMATION
  Report Type: 
  Country: None (occurrence: None)
  Receive Date: 20111109
  Receipt Date: 20111027
  Transmission Date: 20120403
  Serious: Yes (Hospitalization)
  Sender: FDA-Public Use
  Company Number: ES-ELI_LILLY_AND_COMPANY-ES201110007550

PATIENT
  Sex: Female
  Weight: 72.4 kg

DRUGS (5)
  1. MASTICAL [Concomitant]
     Indication: OSTEOPOROSIS
     Dosage: 10 MG, QD
     Route: 048
  2. FORTEO [Suspect]
     Indication: OSTEOPOROSIS
     Dosage: 20 UG, QD
     Route: 058
     Dates: start: 20111011, end: 20111019
  3. SINTROM [Concomitant]
     Indication: THROMBOSIS
     Dosage: 4 MG, QD
     Route: 048
  4. FUROSEMIDE [Concomitant]
     Indication: RENAL FAILURE
     Dosage: 20 MG, QD
     Route: 048
  5. HEPARINA [Concomitant]
     Indication: PERIPHERAL VASCULAR DISORDER
     Dosage: UNK, QD
     Route: 058

REACTIONS (2)
  - THROMBOSIS [None]
  - OEDEMA PERIPHERAL [None]
